FAERS Safety Report 5062251-5 (Version None)
Quarter: 2006Q3

REPORT INFORMATION
  Report Type: 
  Country: None (occurrence: None)
  Receive Date: 20060726
  Receipt Date: 20060719
  Transmission Date: 20061208
  Serious: Yes (Hospitalization)
  Sender: FDA-Public Use
  Company Number: DE-JNJFOC-20060700918

PATIENT
  Sex: Male
  Weight: 90 kg

DRUGS (3)
  1. RISPERDAL CONSTA [Suspect]
     Indication: SCHIZOPHRENIA, PARANOID TYPE
     Route: 030
  2. RISPERDAL [Suspect]
     Indication: DRUG USE FOR UNKNOWN INDICATION
     Route: 048
  3. CARBAMAZEPINE [Interacting]
     Indication: DRUG THERAPY
     Route: 048

REACTIONS (5)
  - AGGRESSION [None]
  - DRUG INEFFECTIVE [None]
  - DRUG INTERACTION [None]
  - PHYSICAL ASSAULT [None]
  - SCHIZOPHRENIA, PARANOID TYPE [None]
